FAERS Safety Report 8361632-1 (Version None)
Quarter: 2012Q2

REPORT INFORMATION
  Report Type: 
  Country: None (occurrence: None)
  Receive Date: 20120515
  Receipt Date: 20120501
  Transmission Date: 20120825
  Serious: No
  Sender: FDA-Public Use
  Company Number: US-ASTRAZENECA-2012SE28333

PATIENT
  Age: 51 Year
  Sex: Female
  Weight: 85.7 kg

DRUGS (3)
  1. SYMBOLTA [Concomitant]
     Indication: ANXIETY
  2. SEROQUEL XR [Suspect]
     Indication: ANXIETY DISORDER
     Route: 048
     Dates: start: 20120430
  3. SEROQUEL XR [Suspect]
     Route: 048

REACTIONS (3)
  - FATIGUE [None]
  - OFF LABEL USE [None]
  - SEDATION [None]
